FAERS Safety Report 16773768 (Version 1)
Quarter: 2019Q3

REPORT INFORMATION
  Report Type: Spontaneous
  Country: BR (occurrence: BR)
  Receive Date: 20190904
  Receipt Date: 20190904
  Transmission Date: 20191005
  Serious: Yes (Hospitalization, Other)
  Sender: FDA-Public Use
  Company Number: PHHY2019BR195765

PATIENT
  Sex: Male
  Weight: 74 kg

DRUGS (2)
  1. CERUMIN [Suspect]
     Active Substance: OXYQUINOLINE\TROLAMINE
     Indication: EXCESSIVE CERUMEN PRODUCTION
     Dosage: 2 GTT, QD
     Route: 001
  2. ATENOLOL. [Suspect]
     Active Substance: ATENOLOL
     Indication: BLOOD PRESSURE ABNORMAL
     Dosage: UNK
     Route: 065

REACTIONS (4)
  - Dizziness [Not Recovered/Not Resolved]
  - Fatigue [Not Recovered/Not Resolved]
  - Fall [Not Recovered/Not Resolved]
  - Hypercoagulation [Recovering/Resolving]
